FAERS Safety Report 19574293 (Version 1)
Quarter: 2021Q3

REPORT INFORMATION
  Report Type: Spontaneous
  Country: US (occurrence: US)
  Receive Date: 20210719
  Receipt Date: 20210719
  Transmission Date: 20211014
  Serious: No
  Sender: FDA-Public Use
  Company Number: US-SA-2021SA230606

PATIENT
  Age: 34 Year
  Sex: Male

DRUGS (1)
  1. LANTUS [Suspect]
     Active Substance: INSULIN GLARGINE
     Indication: DIABETES MELLITUS
     Dosage: INJECTS 38 UNITS, USUALLY INTO HIS THIGH, INJECTED THE LANTUS IN VEINS INSTEAD OF MUSCLE
     Route: 042

REACTIONS (2)
  - Incorrect route of product administration [Unknown]
  - Hypoglycaemia [Unknown]
